FAERS Safety Report 6716249-9 (Version None)
Quarter: 2010Q2

REPORT INFORMATION
  Report Type: 
  Country: None (occurrence: None)
  Receive Date: 20100507
  Receipt Date: 20100428
  Transmission Date: 20101027
  Serious: Yes (Other)
  Sender: FDA-Public Use
  Company Number: GB-BRISTOL-MYERS SQUIBB COMPANY-15083744

PATIENT
  Age: 72 Year
  Sex: Female

DRUGS (2)
  1. QUESTRAN [Suspect]
     Dosage: 4DF-4SACHETS
  2. QUESTRAN LIGHT [Suspect]

REACTIONS (3)
  - ADVERSE EVENT [None]
  - DEHYDRATION [None]
  - DRUG DOSE OMISSION [None]
